FAERS Safety Report 8996876 (Version 1)
Quarter: 2012Q4

REPORT INFORMATION
  Report Type: Spontaneous
  Country: US (occurrence: None)
  Receive Date: 20121231
  Receipt Date: 20121231
  Transmission Date: 20130627
  Serious: Yes (Hospitalization)
  Sender: FDA-Public Use
  Company Number: None

PATIENT
  Age: 62 Year
  Sex: Male
  Weight: 96.8 kg

DRUGS (1)
  1. MELOXICAM [Suspect]
     Dosage: 15 MG EVERY DAY PO
     Route: 048
     Dates: start: 20120730, end: 20121030

REACTIONS (6)
  - Erosive duodenitis [None]
  - Gastric ulcer [None]
  - Dizziness [None]
  - Dizziness [None]
  - Diarrhoea [None]
  - Gastrointestinal haemorrhage [None]
